FAERS Safety Report 4546754-5 (Version None)
Quarter: 2005Q1

REPORT INFORMATION
  Report Type: 
  Country: None (occurrence: None)
  Receive Date: 20050106
  Receipt Date: 20041209
  Transmission Date: 20050727
  Serious: Yes (Hospitalization, Other)
  Sender: FDA-Public Use
  Company Number: TW-ABBOTT-04P-153-0282754-00

PATIENT
  Age: 47 Year
  Sex: Female
  Weight: 60 kg

DRUGS (6)
  1. REDUCTIL 15MG [Suspect]
     Indication: OBESITY
     Route: 048
     Dates: start: 20041121, end: 20041205
  2. REDUCTIL 15MG [Suspect]
     Route: 048
     Dates: start: 20040926, end: 20041120
  3. REDUCTIL 15MG [Suspect]
     Dates: start: 20041206, end: 20041207
  4. REDUCTIL 15MG [Suspect]
  5. OSMOTIC LAXATIVE [Concomitant]
     Indication: CONSTIPATION
     Route: 048
     Dates: start: 20040901
  6. ANTI-INFLAMMATORY [Concomitant]
     Indication: INFLAMMATION
     Route: 048
     Dates: start: 20041101

REACTIONS (4)
  - ANAL FISTULA [None]
  - CONSTIPATION [None]
  - FOLLICULITIS [None]
  - HAEMORRHAGE [None]
